FAERS Safety Report 8075600-0 (Version None)
Quarter: 2012Q1

REPORT INFORMATION
  Report Type: 
  Country: None (occurrence: None)
  Receive Date: 20120127
  Receipt Date: 20120118
  Transmission Date: 20120608
  Serious: Yes (Hospitalization, Other)
  Sender: FDA-Public Use
  Company Number: US-JNJFOC-20101101375

PATIENT
  Sex: Male
  Weight: 94.35 kg

DRUGS (11)
  1. MULTI-VITAMINS [Concomitant]
     Route: 065
  2. INFLIXIMAB, RECOMBINANT [Suspect]
     Indication: CROHN'S DISEASE
     Route: 042
     Dates: start: 20000101, end: 20010101
  3. HUMIRA [Suspect]
     Dosage: 4 IN 1 DAY
     Route: 058
     Dates: start: 20111008, end: 20111008
  4. HUMIRA [Suspect]
     Route: 058
     Dates: start: 20081201, end: 20100618
  5. MAGNESIUM CARBONATE [Concomitant]
  6. MAGNESIUM TRISILICATE [Concomitant]
     Route: 065
  7. HUMIRA [Suspect]
     Indication: CROHN'S DISEASE
     Route: 058
     Dates: start: 20110826
  8. CALCIUM [Concomitant]
     Route: 065
  9. OMEPRAZOLE [Concomitant]
     Indication: GASTROOESOPHAGEAL REFLUX DISEASE
  10. CALCIUM CARBONATE [Concomitant]
     Indication: GASTROOESOPHAGEAL REFLUX DISEASE
  11. DOZOL [Concomitant]
     Route: 065

REACTIONS (14)
  - CROHN'S DISEASE [None]
  - INCISION SITE BLISTER [None]
  - JEJUNAL STENOSIS [None]
  - ILEAL STENOSIS [None]
  - PAIN [None]
  - INFECTION [None]
  - COLECTOMY [None]
  - HERNIA [None]
  - INCISION SITE ABSCESS [None]
  - COLITIS [None]
  - EROSIVE OESOPHAGITIS [None]
  - FUNGAL INFECTION [None]
  - RED BLOOD CELL SEDIMENTATION RATE INCREASED [None]
  - INCISION SITE ERYTHEMA [None]
